FAERS Safety Report 19465463 (Version 2)
Quarter: 2021Q3

REPORT INFORMATION
  Report Type: Spontaneous
  Country: FR (occurrence: FR)
  Receive Date: 20210624
  Receipt Date: 20210715
  Transmission Date: 20211014
  Serious: Yes (Other)
  Sender: FDA-Public Use
  Company Number: NVSC2021FR135970

PATIENT
  Age: 44 Year
  Sex: Female
  Weight: 80 kg

DRUGS (3)
  1. SIKLOS [Concomitant]
     Active Substance: HYDROXYUREA
     Indication: SICKLE CELL ANAEMIA WITH CRISIS
     Dosage: 18 MG/KG, QD
     Route: 048
     Dates: start: 20200321
  2. RED BLOOD CELLS [Concomitant]
     Active Substance: HUMAN RED BLOOD CELL
     Indication: SICKLE CELL ANAEMIA WITH CRISIS
     Dosage: 4 DF, QMO (4 PACKED RED BLOOD CELLS MONTHLY)
     Route: 065
     Dates: start: 20200309, end: 20210614
  3. ADAKVEO [Suspect]
     Active Substance: CRIZANLIZUMAB-TMCA
     Indication: SICKLE CELL ANAEMIA WITH CRISIS
     Dosage: 5 MG/KG
     Route: 042
     Dates: start: 20200911

REACTIONS (5)
  - Device related infection [Recovered/Resolved]
  - Staphylococcal infection [Unknown]
  - Venous thrombosis [Recovered/Resolved]
  - Cellulitis [Unknown]
  - Sickle cell anaemia with crisis [Recovered/Resolved]

NARRATIVE: CASE EVENT DATE: 20210610
